FAERS Safety Report 9516823 (Version 2)
Quarter: 2013Q3

REPORT INFORMATION
  Report Type: Spontaneous
  Country: US (occurrence: US)
  Receive Date: 20130911
  Receipt Date: 20130912
  Transmission Date: 20140515
  Serious: Yes (Hospitalization, Other)
  Sender: FDA-Public Use
  Company Number: US-ABBOTT-13P-163-1143789-00

PATIENT
  Age: 18 Year
  Sex: Female
  Weight: 49.49 kg

DRUGS (8)
  1. DEPAKOTE ER [Suspect]
     Indication: EPILEPSY
     Dosage: AFTER FOOD TWICE A DAY
     Dates: start: 201304
  2. DEPAKOTE ER [Suspect]
     Indication: EPILEPSY
     Dosage: EVERY AFTERNOON
     Dates: start: 201304
  3. DEPAKOTE ER [Suspect]
     Indication: EPILEPSY
     Dosage: VARIOUS DOSES
     Dates: end: 201304
  4. DILANTIN [Suspect]
     Indication: EPILEPSY
     Dates: end: 201304
  5. KEPPRA [Concomitant]
     Indication: CONVULSION
  6. ATIVAN [Concomitant]
     Indication: CONVULSION
  7. OMEPRAZOLE [Concomitant]
     Indication: PRODUCT USED FOR UNKNOWN INDICATION
  8. DIASTAT [Concomitant]
     Indication: CONVULSION

REACTIONS (13)
  - Status epilepticus [Recovered/Resolved]
  - Drug level decreased [Unknown]
  - Medication residue present [Unknown]
  - Device related infection [Recovered/Resolved]
  - Catheter site abscess [Recovered/Resolved]
  - Convulsion [Recovered/Resolved]
  - Convulsion [Recovered/Resolved]
  - Insomnia [Not Recovered/Not Resolved]
  - Chills [Not Recovered/Not Resolved]
  - Tremor [Not Recovered/Not Resolved]
  - Alopecia [Not Recovered/Not Resolved]
  - Incontinence [Unknown]
  - Constipation [Not Recovered/Not Resolved]
